FAERS Safety Report 18268295 (Version 1)
Quarter: 2020Q3

REPORT INFORMATION
  Report Type: Spontaneous
  Country: US (occurrence: US)
  Receive Date: 20200915
  Receipt Date: 20200915
  Transmission Date: 20201103
  Serious: Yes (Death)
  Sender: FDA-Public Use
  Company Number: None

PATIENT
  Age: 71 Year
  Sex: Male

DRUGS (2)
  1. STIVARGA [Suspect]
     Active Substance: REGORAFENIB
  2. STIVARGA [Concomitant]
     Active Substance: REGORAFENIB
     Dates: start: 20200819, end: 20200831

REACTIONS (1)
  - Death [None]

NARRATIVE: CASE EVENT DATE: 20200831
